FAERS Safety Report 25495096 (Version 1)
Quarter: 2025Q2

REPORT INFORMATION
  Report Type: Spontaneous
  Country: BR (occurrence: BR)
  Receive Date: 20250630
  Receipt Date: 20250630
  Transmission Date: 20250717
  Serious: Yes (Hospitalization, Other)
  Sender: SANOFI AVENTIS
  Company Number: BR-ASTELLAS-2022US013652

PATIENT
  Age: 72 Year
  Sex: Male

DRUGS (3)
  1. TAMSULOSIN HYDROCHLORIDE [Suspect]
     Active Substance: TAMSULOSIN HYDROCHLORIDE
     Indication: Benign prostatic hyperplasia
     Dosage: 0.4 MG, QD (0.4 MG, ONCE DAILY)
     Route: 048
     Dates: start: 2020
  2. TAMSULOSIN HYDROCHLORIDE [Suspect]
     Active Substance: TAMSULOSIN HYDROCHLORIDE
     Dosage: 0.4 MG, QD (0.4 MG, ONCE DAILY; ROUTE: NASOGASTRIC)
     Route: 050
     Dates: start: 20220311, end: 202208
  3. Coglive [Concomitant]
     Indication: Dementia Alzheimer^s type
     Route: 050

REACTIONS (5)
  - Urinary tract infection [Recovered/Resolved]
  - Aspiration [Recovering/Resolving]
  - Pneumonia [Recovering/Resolving]
  - Off label use [Not Recovered/Not Resolved]
  - Wrong technique in product usage process [Not Recovered/Not Resolved]

NARRATIVE: CASE EVENT DATE: 20220311
